FAERS Safety Report 12972315 (Version 1)
Quarter: 2016Q4

REPORT INFORMATION
  Report Type: Spontaneous
  Country: NL (occurrence: NL)
  Receive Date: 20161124
  Receipt Date: 20161124
  Transmission Date: 20170207
  Serious: No
  Sender: FDA-Public Use
  Company Number: NL-KYOWAKIRIN-2016BKK000006

PATIENT

DRUGS (4)
  1. SANCUSO [Suspect]
     Active Substance: GRANISETRON
     Indication: PRODUCT USED FOR UNKNOWN INDICATION
     Dosage: UNK
     Route: 062
     Dates: start: 20160905, end: 20160912
  2. DEXAMETASON                        /00016001/ [Concomitant]
     Indication: ANTIEMETIC SUPPORTIVE CARE
     Dosage: 8 MG, BID
     Route: 048
     Dates: start: 20160904, end: 20160908
  3. APREPITANT. [Concomitant]
     Active Substance: APREPITANT
     Dosage: 80 MG, UNK
     Route: 048
     Dates: start: 20160906, end: 20160907
  4. APREPITANT. [Concomitant]
     Active Substance: APREPITANT
     Indication: ANTIEMETIC SUPPORTIVE CARE
     Dosage: 125 MG, QD
     Route: 048
     Dates: start: 20160905

REACTIONS (1)
  - Application site rash [Recovered/Resolved]

NARRATIVE: CASE EVENT DATE: 20160912
